FAERS Safety Report 15861834 (Version 7)
Quarter: 2019Q2

REPORT INFORMATION
  Report Type: Spontaneous
  Country: US (occurrence: US)
  Receive Date: 20190124
  Receipt Date: 20190618
  Transmission Date: 20190711
  Serious: No
  Sender: FDA-Public Use
  Company Number: US-PFIZER INC-2019025223

PATIENT
  Age: 49 Year
  Sex: Male
  Weight: 70.31 kg

DRUGS (3)
  1. LYRICA [Suspect]
     Active Substance: PREGABALIN
     Dosage: 75 MG, DAILY (TAKE 50 MG IN AM AND 25 MG AT BEDTIME)
     Route: 048
     Dates: start: 20190522
  2. LYRICA [Suspect]
     Active Substance: PREGABALIN
     Indication: NEUROPATHY PERIPHERAL
     Dosage: 25 MG, 2X/DAY
     Route: 048
  3. LYRICA [Suspect]
     Active Substance: PREGABALIN
     Dosage: 100 MG, DAILY (1 CAPSULE IN THE MORNING AND 3 CAPSULES AT NIGHT)
     Route: 048

REACTIONS (6)
  - Fatigue [Unknown]
  - Thinking abnormal [Unknown]
  - Depressed mood [Not Recovered/Not Resolved]
  - Feeling abnormal [Unknown]
  - Drug intolerance [Unknown]
  - Memory impairment [Unknown]

NARRATIVE: CASE EVENT DATE: 2018
